FAERS Safety Report 24265991 (Version 1)
Quarter: 2024Q3

REPORT INFORMATION
  Report Type: Spontaneous
  Country: DE (occurrence: DE)
  Receive Date: 20240830
  Receipt Date: 20240830
  Transmission Date: 20241016
  Serious: Yes (Other)
  Sender: AUROBINDO
  Company Number: DE-GERMAN-LIT/DEU/24/0011831

PATIENT
  Age: 68 Year
  Sex: Female

DRUGS (4)
  1. GEMCITABINE [Suspect]
     Active Substance: GEMCITABINE
     Indication: Adrenocortical carcinoma
     Dosage: 2 CYCLES
     Route: 065
     Dates: start: 201903, end: 201904
  2. HYDROCORTISONE [Suspect]
     Active Substance: HYDROCORTISONE\HYDROCORTISONE ACETATE
     Indication: Adrenocortical carcinoma
     Dosage: UNK
     Route: 065
     Dates: start: 201808
  3. CAPECITABINE [Suspect]
     Active Substance: CAPECITABINE
     Indication: Adrenocortical carcinoma
     Dosage: 2 CYCLES
     Route: 065
     Dates: start: 201903, end: 201904
  4. MITOTANE [Suspect]
     Active Substance: MITOTANE
     Indication: Adrenocortical carcinoma
     Dosage: UNK
     Route: 065
     Dates: start: 201808

REACTIONS (2)
  - Malignant neoplasm progression [Unknown]
  - Drug ineffective for unapproved indication [Unknown]

NARRATIVE: CASE EVENT DATE: 20190501
